FAERS Safety Report 24950700 (Version 1)
Quarter: 2025Q1

REPORT INFORMATION
  Report Type: Spontaneous
  Country: US (occurrence: US)
  Receive Date: 20250210
  Receipt Date: 20250210
  Transmission Date: 20250408
  Serious: No
  Sender: PERRIGO
  Company Number: US-PERRIGO-24US001714

PATIENT
  Age: 68 Year
  Sex: Female
  Weight: 47.619 kg

DRUGS (7)
  1. LOPERAMIDE HYDROCHLORIDE [Suspect]
     Active Substance: LOPERAMIDE HYDROCHLORIDE
     Indication: Diarrhoea
     Route: 048
     Dates: start: 20240215, end: 20240215
  2. BENTYL [Concomitant]
     Active Substance: DICYCLOMINE HYDROCHLORIDE
     Indication: Abdominal pain upper
     Route: 065
     Dates: start: 2023
  3. VITAMINS NOS [Concomitant]
     Active Substance: VITAMINS
     Indication: Supplementation therapy
     Route: 065
  4. CALCIUM [Concomitant]
     Active Substance: CALCIUM
     Indication: Osteoporosis
     Route: 065
     Dates: start: 202306
  5. CITALOPRAM [Concomitant]
     Active Substance: CITALOPRAM
     Indication: Depression
     Route: 065
  6. PROBIOTICS NOS [Concomitant]
     Active Substance: PROBIOTICS NOS
     Indication: Clostridium difficile infection
     Route: 065
  7. ACYCLOVIR [Concomitant]
     Active Substance: ACYCLOVIR
     Indication: Product used for unknown indication
     Route: 065

REACTIONS (1)
  - Intentional product use issue [Unknown]

NARRATIVE: CASE EVENT DATE: 20240215
